FAERS Safety Report 11051037 (Version 5)
Quarter: 2018Q2

REPORT INFORMATION
  Report Type: Spontaneous
  Country: FR (occurrence: FR)
  Receive Date: 20150421
  Receipt Date: 20180511
  Transmission Date: 20180711
  Serious: Yes (Hospitalization, Other)
  Sender: FDA-Public Use
  Company Number: FR-ABBVIE-15P-056-1375193-00

PATIENT
  Age: 45 Year
  Sex: Female
  Weight: 100 kg

DRUGS (6)
  1. LOXAPAC [Interacting]
     Active Substance: LOXAPINE
     Indication: BIPOLAR DISORDER
  2. MIANSERINE [Concomitant]
     Active Substance: MIANSERIN HYDROCHLORIDE
     Indication: BIPOLAR DISORDER
     Dosage: FILM COATED TABLET
     Route: 065
  3. SODIUM VALPROATE [Suspect]
     Active Substance: VALPROATE SODIUM
     Indication: BIPOLAR DISORDER
     Dosage: FILM-COATED
     Route: 048
  4. LITHIUM. [Concomitant]
     Active Substance: LITHIUM
     Indication: BIPOLAR DISORDER
     Route: 065
  5. LORAZEPAM. [Concomitant]
     Active Substance: LORAZEPAM
     Indication: BIPOLAR DISORDER
     Route: 065
  6. LOXAPAC [Interacting]
     Active Substance: LOXAPINE
     Indication: AGITATION
     Route: 042

REACTIONS (17)
  - Drug level increased [Unknown]
  - Rhabdomyolysis [Recovering/Resolving]
  - Catatonia [Recovering/Resolving]
  - Altered state of consciousness [Recovering/Resolving]
  - Neuroleptic malignant syndrome [Recovering/Resolving]
  - Drug level above therapeutic [Recovering/Resolving]
  - Hyperthermia [Recovering/Resolving]
  - Tremor [Recovering/Resolving]
  - Alanine aminotransferase increased [Recovering/Resolving]
  - Gamma-glutamyltransferase increased [Recovering/Resolving]
  - Drug interaction [Unknown]
  - Bipolar disorder [Recovering/Resolving]
  - Drug interaction [Recovering/Resolving]
  - Musculoskeletal stiffness [Recovering/Resolving]
  - Agitation [Recovering/Resolving]
  - Aspartate aminotransferase increased [Recovering/Resolving]
  - Extrapyramidal disorder [Unknown]
